FAERS Safety Report 6180264-7 (Version None)
Quarter: 2009Q2

REPORT INFORMATION
  Report Type: 
  Country: None (occurrence: None)
  Receive Date: 20090501
  Receipt Date: 20090415
  Transmission Date: 20091009
  Serious: Yes (Hospitalization, Other)
  Sender: FDA-Public Use
  Company Number: PAR_02942_2009

PATIENT
  Sex: Female

DRUGS (13)
  1. IBUPROFEN [Suspect]
     Indication: PROCEDURAL PAIN
     Dosage: (600 MG TID ORAL)
     Route: 048
     Dates: start: 20090210, end: 20090216
  2. RIVAROXABAN [Suspect]
     Indication: THROMBOSIS PROPHYLAXIS
     Dosage: (10 MG ORAL)
     Route: 048
     Dates: start: 20090209, end: 20090220
  3. PANTOZOL [Concomitant]
  4. PROPOFOL [Concomitant]
  5. TUTOFUSIN [Concomitant]
  6. DIPIDOLOR [Concomitant]
  7. FENTANYL [Concomitant]
  8. NOVALGIN /00039501/ [Concomitant]
  9. DIOVAN /01319601/ [Concomitant]
  10. BISOHEXAL /00802603/ [Concomitant]
  11. DELIX /00885601/ [Concomitant]
  12. ZOP [Concomitant]
  13. BALDRIAN-DISPERT /01561603/ [Concomitant]

REACTIONS (6)
  - COLD SWEAT [None]
  - DIZZINESS [None]
  - FATIGUE [None]
  - HAEMORRHAGIC ANAEMIA [None]
  - POST PROCEDURAL HAEMORRHAGE [None]
  - VOMITING [None]
